FAERS Safety Report 7442830-8 (Version None)
Quarter: 2011Q2

REPORT INFORMATION
  Report Type: 
  Country: None (occurrence: None)
  Receive Date: 20110425
  Receipt Date: 20110425
  Transmission Date: 20111010
  Serious: Yes (Hospitalization)
  Sender: FDA-Public Use
  Company Number: None

PATIENT
  Age: 57 Year
  Sex: Female
  Weight: 122.4712 kg

DRUGS (1)
  1. BOTOX [Suspect]
     Indication: MUSCLE SPASMS
     Dosage: 15ML ONCE IM
     Route: 030
     Dates: start: 20110119, end: 20110119

REACTIONS (7)
  - RASH [None]
  - SWELLING FACE [None]
  - PAIN [None]
  - EMOTIONAL DISORDER [None]
  - SWELLING [None]
  - DYSPNOEA [None]
  - WEIGHT INCREASED [None]
